FAERS Safety Report 26151113 (Version 1)
Quarter: 2025Q4

REPORT INFORMATION
  Report Type: Spontaneous
  Country: US (occurrence: None)
  Receive Date: 20251211
  Receipt Date: 20251211
  Transmission Date: 20260119
  Serious: Yes (Hospitalization)
  Sender: FDA-CTU
  Company Number: None

PATIENT
  Age: 64 Year
  Sex: Female

DRUGS (22)
  1. NUPLAZID [Suspect]
     Active Substance: PIMAVANSERIN TARTRATE
     Indication: Hallucination
     Dosage: FREQUENCY : DAILY;
     Route: 048
     Dates: start: 20250224
  2. NUPLAZID [Suspect]
     Active Substance: PIMAVANSERIN TARTRATE
     Indication: Delusion
  3. TYLENOL [Concomitant]
     Active Substance: ACETAMINOPHEN
  4. Aluterol HFA [Concomitant]
  5. FLEXERIL [Concomitant]
     Active Substance: CYCLOBENZAPRINE HYDROCHLORIDE
  6. DILTIAZEM [Concomitant]
     Active Substance: DILTIAZEM
  7. LEXAPRO [Concomitant]
     Active Substance: ESCITALOPRAM OXALATE
  8. FEXOFENADINE [Concomitant]
     Active Substance: FEXOFENADINE HYDROCHLORIDE
  9. FLUDROCORTISONE [Concomitant]
     Active Substance: FLUDROCORTISONE
  10. Lidex CR [Concomitant]
  11. FLONASE [Concomitant]
     Active Substance: FLUTICASONE PROPIONATE
  12. LASIX [Concomitant]
     Active Substance: FUROSEMIDE
  13. Duoneb nebulized solution [Concomitant]
  14. SINGULAIR [Concomitant]
     Active Substance: MONTELUKAST SODIUM
  15. NYSTATIN [Concomitant]
     Active Substance: NYSTATIN
  16. OMEPRAZOLE [Concomitant]
     Active Substance: OMEPRAZOLE
  17. PRAMIPEXOLE [Concomitant]
     Active Substance: PRAMIPEXOLE
  18. OLANZAPINE [Concomitant]
     Active Substance: OLANZAPINE
  19. LYRICA [Concomitant]
     Active Substance: PREGABALIN
  20. LEVOTHYROXINE [Concomitant]
     Active Substance: LEVOTHYROXINE
  21. CALCIUM [Concomitant]
     Active Substance: CALCIUM
  22. CREXONT [Concomitant]
     Active Substance: CARBIDOPA\LEVODOPA

REACTIONS (1)
  - Urinary tract infection [None]

NARRATIVE: CASE EVENT DATE: 20251205
